FAERS Safety Report 17215291 (Version 1)
Quarter: 2019Q4

REPORT INFORMATION
  Report Type: Report from Study
  Country: US (occurrence: US)
  Receive Date: 20191230
  Receipt Date: 20191230
  Transmission Date: 20200122
  Serious: No
  Sender: FDA-Public Use
  Company Number: US-CLOVIS ONCOLOGY-CLO-2019-002422

PATIENT
  Sex: Female

DRUGS (3)
  1. RUBRACA [Suspect]
     Active Substance: RUCAPARIB CAMSYLATE
     Indication: OVARIAN CANCER
     Dosage: 600 MG, BID
     Route: 048
     Dates: start: 201911, end: 201911
  2. RUBRACA [Suspect]
     Active Substance: RUCAPARIB CAMSYLATE
     Dosage: 600 MG, BID
     Route: 048
     Dates: start: 20191106, end: 2019
  3. RUBRACA [Suspect]
     Active Substance: RUCAPARIB CAMSYLATE
     Dosage: UNK
     Route: 065
     Dates: start: 20191106, end: 201911

REACTIONS (5)
  - Insomnia [Unknown]
  - Somnolence [Unknown]
  - Fatigue [Not Recovered/Not Resolved]
  - Sleep disorder [Unknown]
  - Nausea [Unknown]

NARRATIVE: CASE EVENT DATE: 2019
